FAERS Safety Report 7727360-8 (Version None)
Quarter: 2011Q3

REPORT INFORMATION
  Report Type: 
  Country: None (occurrence: None)
  Receive Date: 20110902
  Receipt Date: 20110831
  Transmission Date: 20111222
  Serious: Yes (Death, Other)
  Sender: FDA-Public Use
  Company Number: US-AMGEN-USASP2011043482

PATIENT
  Age: 54 Year
  Sex: Female

DRUGS (2)
  1. NPLATE [Suspect]
     Indication: IDIOPATHIC THROMBOCYTOPENIC PURPURA
     Dosage: 195 MUG, QWK
     Route: 058
     Dates: start: 20110406, end: 20110420
  2. CORTICOSTEROIDS [Concomitant]
     Indication: IDIOPATHIC THROMBOCYTOPENIC PURPURA

REACTIONS (3)
  - CERVIX CANCER METASTATIC [None]
  - PULSELESS ELECTRICAL ACTIVITY [None]
  - DRUG INEFFECTIVE [None]
